FAERS Safety Report 9372238 (Version 1)
Quarter: 2013Q2

REPORT INFORMATION
  Report Type: Report from Study
  Country: US (occurrence: US)
  Receive Date: 20130627
  Receipt Date: 20130627
  Transmission Date: 20140414
  Serious: Yes (Other)
  Sender: FDA-Public Use
  Company Number: US-MYLANLABS-2012S1017668

PATIENT
  Age: 47 Year
  Sex: Male

DRUGS (9)
  1. CLOZAPINE TABLETS [Suspect]
     Indication: SCHIZOPHRENIA, UNDIFFERENTIATED TYPE
     Dates: end: 20120814
  2. CLOZAPINE TABLETS [Suspect]
     Indication: SCHIZOPHRENIA, UNDIFFERENTIATED TYPE
     Route: 048
     Dates: end: 20120823
  3. CLOZAPINE TABLETS [Suspect]
     Indication: SCHIZOPHRENIA, UNDIFFERENTIATED TYPE
     Route: 048
     Dates: end: 20120823
  4. PEGASYS [Suspect]
     Indication: HEPATITIS C
     Dosage: 180UG/0.5ML
     Dates: start: 201207
  5. SEROQUEL [Concomitant]
  6. TEGRETOL [Concomitant]
  7. ZOLPIDEM [Concomitant]
  8. INCIVEK [Concomitant]
  9. RIBASPHERE [Concomitant]

REACTIONS (2)
  - Granulocytopenia [Not Recovered/Not Resolved]
  - Leukopenia [Not Recovered/Not Resolved]
